FAERS Safety Report 19637982 (Version 1)
Quarter: 2021Q3

REPORT INFORMATION
  Report Type: Spontaneous
  Country: US (occurrence: US)
  Receive Date: 20210730
  Receipt Date: 20210730
  Transmission Date: 20211014
  Serious: No
  Sender: FDA-Public Use
  Company Number: US-EMD SERONO-7094484

PATIENT
  Sex: Male

DRUGS (2)
  1. REBIF [Suspect]
     Active Substance: INTERFERON BETA-1A
     Indication: MULTIPLE SCLEROSIS
     Route: 058
     Dates: start: 20110808
  2. REBIF [Suspect]
     Active Substance: INTERFERON BETA-1A
     Route: 058
     Dates: start: 20191230, end: 20210712

REACTIONS (5)
  - Insurance issue [Unknown]
  - Secondary progressive multiple sclerosis [Unknown]
  - Muscular weakness [Unknown]
  - Product dose omission issue [Unknown]
  - Influenza like illness [Not Recovered/Not Resolved]
